FAERS Safety Report 20998761 (Version 1)
Quarter: 2022Q2

REPORT INFORMATION
  Report Type: Report from Study
  Country: US (occurrence: US)
  Receive Date: 20220623
  Receipt Date: 20220623
  Transmission Date: 20220721
  Serious: Yes (Hospitalization, Other)
  Sender: FDA-Public Use
  Company Number: US-HORIZON THERAPEUTICS-HZN-2021-007499

PATIENT

DRUGS (3)
  1. UPLIZNA [Suspect]
     Active Substance: INEBILIZUMAB-CDON
     Indication: Neuromyelitis optica spectrum disorder
     Dosage: FIRST INFUSION
     Route: 042
     Dates: start: 20210302
  2. UPLIZNA [Suspect]
     Active Substance: INEBILIZUMAB-CDON
     Dosage: UNK (INFUSION)
     Route: 042
     Dates: start: 20210920
  3. UPLIZNA [Suspect]
     Active Substance: INEBILIZUMAB-CDON
     Dosage: FOURTH INFUSION
     Route: 042
     Dates: start: 20220318

REACTIONS (14)
  - Neuromyelitis optica spectrum disorder [Unknown]
  - Peripheral swelling [Unknown]
  - Infection [Unknown]
  - Sensitive skin [Unknown]
  - Malaise [Unknown]
  - Burning sensation [Unknown]
  - Abdominal discomfort [Unknown]
  - Pain [Unknown]
  - Headache [Unknown]
  - Pelvic pain [Unknown]
  - Fatigue [Unknown]
  - Gait inability [Unknown]
  - Emotional distress [Unknown]
  - Arthralgia [Unknown]

NARRATIVE: CASE EVENT DATE: 20220301
